FAERS Safety Report 8351278-3 (Version None)
Quarter: 2012Q2

REPORT INFORMATION
  Report Type: 
  Country: None (occurrence: None)
  Receive Date: 20120510
  Receipt Date: 20120504
  Transmission Date: 20120825
  Serious: Yes (Hospitalization, Disabling, Other)
  Sender: FDA-Public Use
  Company Number: US-ASTRAZENECA-2010SE23077

PATIENT
  Age: 69 Year
  Sex: Female
  Weight: 77.1 kg

DRUGS (6)
  1. AMBIEN CR [Concomitant]
  2. ATIVAN [Concomitant]
  3. PLAVIX [Concomitant]
  4. CRESTOR [Suspect]
     Indication: HYPERCHOLESTEROLAEMIA
     Route: 048
  5. PROTONICS [Concomitant]
  6. ATENOLOL [Concomitant]

REACTIONS (5)
  - ISCHAEMIC STROKE [None]
  - AREFLEXIA [None]
  - HEADACHE [None]
  - INTENTIONAL DRUG MISUSE [None]
  - AMNESIA [None]
